FAERS Safety Report 5189754-7 (Version None)
Quarter: 2006Q4

REPORT INFORMATION
  Report Type: 
  Country: None (occurrence: None)
  Receive Date: 20061215
  Receipt Date: 20061205
  Transmission Date: 20070319
  Serious: Yes (Other)
  Sender: FDA-Public Use
  Company Number: 2006144093

PATIENT
  Age: 68 Year
  Sex: Male
  Weight: 67 kg

DRUGS (6)
  1. VFEND [Suspect]
     Indication: ASPERGILLOMA
     Dosage: 400 MG (1 IN 1 D), ORAL
     Route: 048
     Dates: start: 20060801
  2. VFEND [Suspect]
     Indication: ASPERGILLOSIS
     Dosage: 400 MG (1 IN 1 D), ORAL
     Route: 048
     Dates: start: 20060801
  3. VFEND [Suspect]
     Indication: BRONCHOPULMONARY ASPERGILLOSIS
     Dosage: 400 MG (1 IN 1 D), ORAL
     Route: 048
     Dates: start: 20060801
  4. CANCIDAS [Concomitant]
  5. OMEPRAZOLE [Concomitant]
  6. NAPROXEN [Concomitant]

REACTIONS (2)
  - VENTRICULAR EXTRASYSTOLES [None]
  - VENTRICULAR HYPOKINESIA [None]
